FAERS Safety Report 10498392 (Version 2)
Quarter: 2014Q4

REPORT INFORMATION
  Report Type: Spontaneous
  Country: FR (occurrence: FR)
  Receive Date: 20141006
  Receipt Date: 20141006
  Transmission Date: 20150528
  Serious: Yes (Hospitalization)
  Sender: FDA-Public Use
  Company Number: FR-PFIZER INC-2014256923

PATIENT
  Age: 91 Year
  Sex: Female

DRUGS (2)
  1. FELDENE [Suspect]
     Active Substance: PIROXICAM
     Indication: OSTEOARTHRITIS
     Dosage: UNK
  2. FELDENE [Suspect]
     Active Substance: PIROXICAM
     Indication: MUSCULOSKELETAL PAIN

REACTIONS (10)
  - Decreased appetite [Not Recovered/Not Resolved]
  - Rash pustular [Not Recovered/Not Resolved]
  - General physical health deterioration [Not Recovered/Not Resolved]
  - Herpes zoster [Not Recovered/Not Resolved]
  - Malnutrition [Not Recovered/Not Resolved]
  - Constipation [Not Recovered/Not Resolved]
  - Pain [Not Recovered/Not Resolved]
  - Nausea [Not Recovered/Not Resolved]
  - Pyrexia [Not Recovered/Not Resolved]
  - Loss of control of legs [Not Recovered/Not Resolved]
